FAERS Safety Report 4434821-6 (Version None)
Quarter: 2004Q3

REPORT INFORMATION
  Report Type: 
  Country: None (occurrence: None)
  Receive Date: 20040726
  Receipt Date: 20040527
  Transmission Date: 20050211
  Serious: Yes (Other)
  Sender: FDA-Public Use
  Company Number: US_0404102512

PATIENT
  Age: 69 Year
  Sex: Female

DRUGS (4)
  1. EVISTA [Suspect]
     Dates: start: 20000101
  2. FORTEO [Suspect]
  3. FOSAMAX [Concomitant]
  4. ACTONEL [Concomitant]

REACTIONS (3)
  - DRUG INEFFECTIVE [None]
  - KYPHOSIS [None]
  - MIGRAINE [None]
